FAERS Safety Report 22078859 (Version 1)
Quarter: 2023Q1

REPORT INFORMATION
  Report Type: Spontaneous
  Country: AR (occurrence: AR)
  Receive Date: 20230309
  Receipt Date: 20230309
  Transmission Date: 20230418
  Serious: Yes (Other)
  Sender: FDA-Public Use
  Company Number: AR-PFIZER INC-PV202300018927

PATIENT
  Age: 72 Year
  Sex: Female

DRUGS (9)
  1. ENBREL [Suspect]
     Active Substance: ETANERCEPT
     Indication: Rheumatoid arthritis
     Dosage: 50 MG, WEEKLY
     Route: 065
     Dates: start: 20111201
  2. METHOTREXATE [Concomitant]
     Active Substance: METHOTREXATE
     Dosage: 25 MG, WEEKLY
     Dates: start: 2006
  3. ARCOXIA [Concomitant]
     Active Substance: ETORICOXIB
     Dosage: 90 MG, 3 TIMES PER WEEK
     Dates: start: 2006
  4. FOLIC ACID [Concomitant]
     Active Substance: FOLIC ACID
     Dosage: 5 MG, DAILY
     Dates: start: 2006
  5. OMEPRAZOLE [Concomitant]
     Active Substance: OMEPRAZOLE
     Dosage: 20 MG, DAILY
     Dates: start: 2006
  6. Calcimax [Concomitant]
     Dosage: UNK, DAILY
     Dates: start: 2006
  7. VILAZODONE [Concomitant]
     Active Substance: VILAZODONE
     Dosage: 40 MG, DAILY
     Dates: start: 2006
  8. ALPRAZOLAM [Concomitant]
     Active Substance: ALPRAZOLAM
     Dosage: 1 MG, DAILY
     Dates: start: 2006
  9. MIAPAX [Concomitant]
     Dosage: 1 MG, DAILY
     Dates: start: 2006

REACTIONS (8)
  - Arthrodesis [Not Recovered/Not Resolved]
  - Foot deformity [Not Recovered/Not Resolved]
  - Joint injection [Not Recovered/Not Resolved]
  - Bone graft [Not Recovered/Not Resolved]
  - Depression [Not Recovered/Not Resolved]
  - Insomnia [Not Recovered/Not Resolved]
  - Arthralgia [Not Recovered/Not Resolved]
  - Pain [Not Recovered/Not Resolved]
